FAERS Safety Report 7725559-8 (Version None)
Quarter: 2011Q3

REPORT INFORMATION
  Report Type: 
  Country: None (occurrence: None)
  Receive Date: 20110902
  Receipt Date: 20110823
  Transmission Date: 20111222
  Serious: Yes (Death)
  Sender: FDA-Public Use
  Company Number: GB-RANBAXY-2011R1-47130

PATIENT
  Age: 15 Year
  Sex: Female

DRUGS (2)
  1. ST JOHN'S WORT [Concomitant]
     Indication: PRODUCT USED FOR UNKNOWN INDICATION
     Route: 065
  2. FLUOXETINE [Suspect]
     Indication: DEPRESSION
     Dosage: 20MG, UNK
     Route: 048
     Dates: start: 20110426, end: 20110501

REACTIONS (1)
  - COMPLETED SUICIDE [None]
